FAERS Safety Report 6717736-X (Version None)
Quarter: 2010Q2

REPORT INFORMATION
  Report Type: 
  Country: None (occurrence: None)
  Receive Date: 20100510
  Receipt Date: 20100503
  Transmission Date: 20101027
  Serious: Yes (Death, Life-Threatening, Other)
  Sender: FDA-Public Use
  Company Number: US-ROXANE LABORATORIES, INC.-2010-RO-00511RO

PATIENT
  Age: 50 Year
  Sex: Male

DRUGS (9)
  1. LORAZEPAM [Suspect]
     Indication: GRAND MAL CONVULSION
  2. LORAZEPAM [Suspect]
  3. COCAINE [Suspect]
  4. ALCOHOL [Suspect]
  5. NOREPINEPHRINE [Suspect]
     Indication: HYPOTENSION
  6. SODIUM BICARBONATE [Suspect]
     Indication: BLOOD BICARBONATE DECREASED
  7. FOMEPIZOLE [Suspect]
     Indication: LACTIC ACIDOSIS
     Route: 042
  8. FOMEPIZOLE [Suspect]
     Route: 042
  9. FOMEPIZOLE [Suspect]
     Route: 042

REACTIONS (13)
  - ACCIDENTAL OVERDOSE [None]
  - ALCOHOL POISONING [None]
  - ANOXIC ENCEPHALOPATHY [None]
  - CARDIAC ARREST [None]
  - CHOKING [None]
  - DRUG ABUSE [None]
  - DRUG TOXICITY [None]
  - GRAND MAL CONVULSION [None]
  - HYPOTENSION [None]
  - LACTIC ACIDOSIS [None]
  - MEDICATION ERROR [None]
  - RENAL FAILURE [None]
  - RENAL TUBULAR NECROSIS [None]
